FAERS Safety Report 7740922-7 (Version None)
Quarter: 2011Q3

REPORT INFORMATION
  Report Type: 
  Country: None (occurrence: None)
  Receive Date: 20110909
  Receipt Date: 20110826
  Transmission Date: 20111222
  Serious: Yes (Hospitalization)
  Sender: FDA-Public Use
  Company Number: PHHY2011JP75855

PATIENT
  Sex: Male
  Weight: 73 kg

DRUGS (3)
  1. ADALAT [Concomitant]
     Dosage: UNK UKN, UNK
     Route: 048
  2. DIOVAN [Suspect]
     Dosage: UNK UKN, UNK
     Route: 048
  3. GLYBURIDE [Concomitant]
     Route: 048

REACTIONS (1)
  - PNEUMONIA LEGIONELLA [None]
